FAERS Safety Report 12450706 (Version 1)
Quarter: 2016Q2

REPORT INFORMATION
  Report Type: Spontaneous
  Country: US (occurrence: US)
  Receive Date: 20160609
  Receipt Date: 20160609
  Transmission Date: 20160815
  Serious: Yes (Other)
  Sender: FDA-Public Use
  Company Number: US-B. BRAUN MEDICAL INC.-1053576

PATIENT
  Age: 54 Year
  Sex: Male

DRUGS (10)
  1. GLUCOSE [Concomitant]
     Active Substance: DEXTROSE
     Route: 042
     Dates: start: 20160126, end: 20160128
  2. INTRALIPID [Concomitant]
     Active Substance: EGG PHOSPHOLIPIDS\GLYCERIN\SOYBEAN OIL
     Route: 042
     Dates: start: 20160112
  3. INTRALIPID [Concomitant]
     Active Substance: EGG PHOSPHOLIPIDS\GLYCERIN\SOYBEAN OIL
     Route: 042
     Dates: start: 20160208, end: 20160225
  4. GLUCOSE [Concomitant]
     Active Substance: DEXTROSE
     Route: 042
     Dates: start: 20160318
  5. GLUCOSE [Concomitant]
     Active Substance: DEXTROSE
     Route: 042
     Dates: start: 20160205, end: 20160317
  6. NUTRILIPID I.V. FAT EMULSION [Suspect]
     Active Substance: SOYBEAN OIL
     Indication: PARENTERAL NUTRITION
     Route: 042
     Dates: start: 20160226
  7. GLUCOSE [Concomitant]
     Active Substance: DEXTROSE
     Route: 042
     Dates: start: 20160129, end: 20160204
  8. AMINO ACID NOS [Concomitant]
     Route: 042
     Dates: start: 20160112
  9. THIOCTIC ACID [Concomitant]
     Active Substance: THIOCTIC ACID
  10. ASCORBIC ACID. [Concomitant]
     Active Substance: ASCORBIC ACID

REACTIONS (6)
  - Blood alkaline phosphatase increased [None]
  - Bilirubin conjugated increased [None]
  - Aspartate aminotransferase increased [None]
  - Liver function test abnormal [None]
  - Blood bilirubin increased [None]
  - Alanine aminotransferase increased [None]
